FAERS Safety Report 9032699 (Version 2)
Quarter: 2013Q1

REPORT INFORMATION
  Report Type: Spontaneous
  Country: US (occurrence: US)
  Receive Date: 20130128
  Receipt Date: 20130204
  Transmission Date: 20140127
  Serious: Yes (Death)
  Sender: FDA-Public Use
  Company Number: US-BIOGENIDEC-2013BI006151

PATIENT
  Age: 30 Year
  Sex: Male

DRUGS (6)
  1. TYSABRI [Suspect]
     Indication: MULTIPLE SCLEROSIS
     Route: 042
     Dates: start: 20121010, end: 20121206
  2. AVONEX [Concomitant]
     Indication: MULTIPLE SCLEROSIS
     Route: 030
  3. TESTOSTERONE [Concomitant]
  4. SYNTHROID [Concomitant]
  5. DD AVP (DESMOPRESSIN ACETATE TABLETS) [Concomitant]
  6. PREDNISONE [Concomitant]

REACTIONS (3)
  - Influenza [Unknown]
  - Malaise [Unknown]
  - Death [Fatal]
